FAERS Safety Report 15216171 (Version 1)
Quarter: 2018Q3

REPORT INFORMATION
  Report Type: Spontaneous
  Country: US (occurrence: US)
  Receive Date: 20180730
  Receipt Date: 20180730
  Transmission Date: 20181010
  Serious: Yes (Hospitalization)
  Sender: FDA-Public Use
  Company Number: PHHY2018US052808

PATIENT
  Age: 59 Year
  Sex: Female

DRUGS (3)
  1. CEFTRIAXONE. [Suspect]
     Active Substance: CEFTRIAXONE
     Indication: PNEUMONIA
     Route: 065
  2. AZITHROMYCIN ANHYDROUS. [Suspect]
     Active Substance: AZITHROMYCIN ANHYDROUS
     Indication: PNEUMONIA
     Route: 065
  3. ZIPRASIDONE. [Suspect]
     Active Substance: ZIPRASIDONE
     Indication: BIPOLAR DISORDER
     Route: 065

REACTIONS (7)
  - Pyrexia [Unknown]
  - Tachypnoea [Recovering/Resolving]
  - Wheezing [Unknown]
  - Malaise [Unknown]
  - Alveolitis allergic [Unknown]
  - Dyspnoea [Unknown]
  - Respiratory failure [Recovering/Resolving]
